FAERS Safety Report 15204049 (Version 1)
Quarter: 2018Q3

REPORT INFORMATION
  Report Type: Spontaneous
  Country: US (occurrence: US)
  Receive Date: 20180628
  Receipt Date: 20180628
  Transmission Date: 20181010
  Serious: Yes (Hospitalization)
  Sender: FDA-Public Use
  Company Number: None

PATIENT
  Age: 40 Year
  Sex: Female
  Weight: 51.75 kg

DRUGS (1)
  1. VENOFER [Suspect]
     Active Substance: IRON SUCROSE
     Indication: IRON DEFICIENCY ANAEMIA
     Route: 042
     Dates: start: 20180622, end: 20180626

REACTIONS (9)
  - Loss of consciousness [None]
  - Fall [None]
  - Tachycardia [None]
  - Chest discomfort [None]
  - Drug hypersensitivity [None]
  - Hypotension [None]
  - Muscle spasms [None]
  - Chest pain [None]
  - Paraesthesia [None]

NARRATIVE: CASE EVENT DATE: 20180626
